FAERS Safety Report 6174727-8 (Version None)
Quarter: 2009Q2

REPORT INFORMATION
  Report Type: 
  Country: None (occurrence: None)
  Receive Date: 20090430
  Receipt Date: 20080903
  Transmission Date: 20091009
  Serious: No
  Sender: FDA-Public Use
  Company Number: US-ASTRAZENECA-2008UW18152

PATIENT
  Age: 50 Year
  Sex: Female
  Weight: 74.8 kg

DRUGS (4)
  1. NEXIUM [Suspect]
     Indication: REFLUX OESOPHAGITIS
     Route: 048
     Dates: start: 20080830
  2. NEXIUM [Suspect]
     Route: 048
  3. METRONIDAZOLE [Concomitant]
  4. CLARITHROMYCIN [Concomitant]

REACTIONS (2)
  - DYSGEUSIA [None]
  - TONGUE DISCOLOURATION [None]
